FAERS Safety Report 11355257 (Version 6)
Quarter: 2016Q4

REPORT INFORMATION
  Report Type: Spontaneous
  Country: JP (occurrence: JP)
  Receive Date: 20150807
  Receipt Date: 20161010
  Transmission Date: 20170206
  Serious: Yes (Life-Threatening, Hospitalization)
  Sender: FDA-Public Use
  Company Number: JP-B.I. PHARMACEUTICALS,INC./RIDGEFIELD-2015-BI-41792NB

PATIENT
  Age: 74 Year
  Sex: Female
  Weight: 36.8 kg

DRUGS (6)
  1. WARFARIN [Suspect]
     Active Substance: WARFARIN
     Indication: HEART VALVE OPERATION
     Route: 048
     Dates: start: 20150625, end: 20150629
  2. WARFARIN [Suspect]
     Active Substance: WARFARIN
     Indication: HEART VALVE OPERATION
     Route: 048
     Dates: start: 20150707, end: 20150710
  3. GILOTRIF [Suspect]
     Active Substance: AFATINIB
     Route: 048
     Dates: start: 20150705, end: 20150714
  4. WARFARIN [Suspect]
     Active Substance: WARFARIN
     Indication: HEART VALVE OPERATION
     Route: 048
     Dates: start: 20150630, end: 20150706
  5. GILOTRIF [Suspect]
     Active Substance: AFATINIB
     Indication: LUNG ADENOCARCINOMA
     Route: 048
     Dates: start: 20150623, end: 20150702
  6. WARFARIN [Suspect]
     Active Substance: WARFARIN
     Indication: HEART VALVE OPERATION
     Route: 048
     Dates: end: 20150624

REACTIONS (3)
  - Prothrombin time prolonged [Recovered/Resolved]
  - Cardiac failure [Recovered/Resolved]
  - Drug interaction [Unknown]

NARRATIVE: CASE EVENT DATE: 20150706
